FAERS Safety Report 9426859 (Version 1)
Quarter: 2013Q3

REPORT INFORMATION
  Report Type: Spontaneous
  Country: US (occurrence: US)
  Receive Date: 20130730
  Receipt Date: 20130730
  Transmission Date: 20140515
  Serious: No
  Sender: FDA-Public Use
  Company Number: US-SANOFI-AVENTIS-2013SA021873

PATIENT
  Age: 45 Year
  Sex: Male

DRUGS (1)
  1. ZOLPIDEM TARTRATE EXTENDED RELEASE - WINTHROP [Suspect]
     Indication: SLEEP DISORDER
     Route: 048

REACTIONS (5)
  - Nervousness [Not Recovered/Not Resolved]
  - Drug withdrawal syndrome [Not Recovered/Not Resolved]
  - Feeling abnormal [Not Recovered/Not Resolved]
  - Insomnia [Not Recovered/Not Resolved]
  - Restlessness [Not Recovered/Not Resolved]
